FAERS Safety Report 8922252 (Version 1)
Quarter: 2012Q4

REPORT INFORMATION
  Report Type: 
  Country: FR (occurrence: FR)
  Receive Date: 20121123
  Receipt Date: 20121123
  Transmission Date: 20130627
  Serious: Yes (Hospitalization)
  Sender: FDA-Public Use
  Company Number: FR-JNJFOC-20121110057

PATIENT
  Age: 60 Year
  Sex: Female

DRUGS (14)
  1. REMICADE [Suspect]
     Indication: PRODUCT USED FOR UNKNOWN INDICATION
     Dosage: 600 mg per cycle
     Route: 042
     Dates: start: 20120426
  2. REMICADE [Suspect]
     Indication: PRODUCT USED FOR UNKNOWN INDICATION
     Dosage: 600 mg per cycle
     Route: 042
     Dates: start: 20120927, end: 20120927
  3. ALTEIS [Concomitant]
     Route: 065
  4. LASILIX [Concomitant]
     Route: 065
  5. MIRCERA [Concomitant]
     Route: 065
  6. FUMAFER [Concomitant]
     Route: 065
  7. PARIET [Concomitant]
     Route: 065
  8. ELISOR [Concomitant]
     Route: 065
  9. DOLIPRANE [Concomitant]
     Route: 065
  10. LANTUS [Concomitant]
     Route: 065
  11. NOVORAPID [Concomitant]
     Route: 065
  12. SERETIDE [Concomitant]
     Route: 065
  13. VENTOLIN [Concomitant]
     Route: 065
  14. ALVERINE [Concomitant]
     Route: 065

REACTIONS (7)
  - Dyspnoea [Recovered/Resolved]
  - Pruritus [Recovered/Resolved]
  - Cyanosis [Recovered/Resolved]
  - Pharyngeal oedema [Recovered/Resolved]
  - Rash [Recovered/Resolved]
  - Palatal oedema [Recovered/Resolved]
  - Infusion related reaction [Recovered/Resolved]
